FAERS Safety Report 8191733-2 (Version None)
Quarter: 2012Q1

REPORT INFORMATION
  Report Type: 
  Country: None (occurrence: None)
  Receive Date: 20120307
  Receipt Date: 20120305
  Transmission Date: 20120608
  Serious: Yes (Other)
  Sender: FDA-Public Use
  Company Number: US-PFIZER INC-2012059454

PATIENT

DRUGS (7)
  1. NORVASC [Suspect]
     Dosage: 5 MG, 1X/DAY
     Route: 048
  2. LISINOPRIL [Concomitant]
     Dosage: UNK
  3. COREG [Concomitant]
     Dosage: UNK
  4. PLAVIX [Concomitant]
     Dosage: UNK
  5. LIPITOR [Suspect]
     Dosage: 20 MG, 1X/DAY
     Route: 048
  6. NITROGLYCERIN [Concomitant]
     Dosage: UNK
  7. ASPIRIN [Concomitant]
     Dosage: UNK

REACTIONS (1)
  - ROAD TRAFFIC ACCIDENT [None]
